FAERS Safety Report 21421791 (Version 2)
Quarter: 2023Q1

REPORT INFORMATION
  Report Type: Report from Study
  Country: JP (occurrence: JP)
  Receive Date: 20221007
  Receipt Date: 20230315
  Transmission Date: 20230417
  Serious: Yes (Other)
  Sender: FDA-Public Use
  Company Number: JP-ASTELLAS-2022JP007378

PATIENT
  Age: 70 Year
  Sex: Female
  Weight: 46 kg

DRUGS (3)
  1. ENFORTUMAB VEDOTIN [Suspect]
     Active Substance: ENFORTUMAB VEDOTIN
     Indication: Transitional cell carcinoma
     Dosage: 1.25 MG/KG, ONCE WEEKLY, REPEATED FOR 3 TIMES AND INTERRUPTED AT WEEK 4
     Route: 041
     Dates: start: 20220316, end: 20220722
  2. ENFORTUMAB VEDOTIN [Suspect]
     Active Substance: ENFORTUMAB VEDOTIN
     Route: 041
     Dates: start: 20220902, end: 20220902
  3. ENFORTUMAB VEDOTIN [Suspect]
     Active Substance: ENFORTUMAB VEDOTIN
     Route: 041
     Dates: start: 20220930, end: 20220930

REACTIONS (7)
  - Malignant neoplasm progression [Unknown]
  - Neoplasm progression [Unknown]
  - Pigmentation disorder [Unknown]
  - Cancer pain [Not Recovered/Not Resolved]
  - Taste disorder [Unknown]
  - Weight decreased [Not Recovered/Not Resolved]
  - Skin lesion [Recovering/Resolving]

NARRATIVE: CASE EVENT DATE: 20220501
